FAERS Safety Report 7228342-5 (Version None)
Quarter: 2011Q1

REPORT INFORMATION
  Report Type: 
  Country: None (occurrence: None)
  Receive Date: 20110114
  Receipt Date: 20100518
  Transmission Date: 20110831
  Serious: Yes (Hospitalization)
  Sender: FDA-Public Use
  Company Number: CA-BAXTER-2010BH012375

PATIENT
  Age: 54 Year
  Sex: Female

DRUGS (1)
  1. SODIUM CHLORIDE 0.9% IN PLASTIC CONTAINER [Suspect]
     Indication: CORONARY ARTERY BYPASS
     Route: 065
     Dates: start: 20100427

REACTIONS (2)
  - PRODUCT CONTAINER ISSUE [None]
  - ACCIDENTAL EXPOSURE [None]
